APPROVED DRUG PRODUCT: MEMANTINE HYDROCHLORIDE AND DONEPEZIL HYDROCHLORIDE
Active Ingredient: DONEPEZIL HYDROCHLORIDE; MEMANTINE HYDROCHLORIDE
Strength: 10MG;21MG
Dosage Form/Route: CAPSULE, EXTENDED RELEASE;ORAL
Application: A208237 | Product #001 | TE Code: AB
Applicant: ANI PHARMACEUTICALS INC
Approved: Dec 15, 2023 | RLD: No | RS: No | Type: RX